FAERS Safety Report 9232338 (Version 1)
Quarter: 2013Q2

REPORT INFORMATION
  Report Type: Spontaneous
  Country: ES (occurrence: ES)
  Receive Date: 20130416
  Receipt Date: 20130416
  Transmission Date: 20140414
  Serious: No
  Sender: FDA-Public Use
  Company Number: ES-009507513-1304ESP005577

PATIENT
  Age: 9 Year
  Sex: Female

DRUGS (2)
  1. DIPRODERM [Suspect]
     Dosage: TOTAL DAILY DOSE: 5 ML
     Route: 048
     Dates: start: 20130410, end: 20130410
  2. POLARAMINE [Suspect]
     Dosage: STRENGTH: 2MG PER 5ML
     Dates: start: 201304

REACTIONS (4)
  - Abdominal discomfort [Recovered/Resolved]
  - Drug dispensing error [Unknown]
  - Drug administration error [Unknown]
  - Drug name confusion [Unknown]
